FAERS Safety Report 8159083-8 (Version None)
Quarter: 2012Q1

REPORT INFORMATION
  Report Type: 
  Country: None (occurrence: None)
  Receive Date: 20120223
  Receipt Date: 20120221
  Transmission Date: 20120608
  Serious: No
  Sender: FDA-Public Use
  Company Number: US-PFIZER INC-2012045747

PATIENT
  Sex: Male
  Weight: 56.236 kg

DRUGS (4)
  1. ADVIL COLD AND SINUS [Suspect]
     Indication: NASOPHARYNGITIS
     Dosage: UNK
     Route: 048
  2. SINGULAIR [Suspect]
     Dosage: UNK
     Route: 048
  3. ADVIL COLD AND SINUS [Suspect]
     Indication: COUGH
  4. AMOXICILLIN [Concomitant]
     Indication: TOOTH INFECTION
     Dosage: UNK, EVERY SIX HOURS

REACTIONS (3)
  - HYPERSENSITIVITY [None]
  - HALLUCINATION, VISUAL [None]
  - SOMNOLENCE [None]
